FAERS Safety Report 23302901 (Version 3)
Quarter: 2024Q1

REPORT INFORMATION
  Report Type: Report from Study
  Country: CA (occurrence: CA)
  Receive Date: 20231215
  Receipt Date: 20240129
  Transmission Date: 20240409
  Serious: Yes (Hospitalization)
  Sender: FDA-Public Use
  Company Number: CA-Eisai-EC-2023-155154

PATIENT
  Age: 61 Year
  Sex: Female

DRUGS (2)
  1. BANZEL [Suspect]
     Active Substance: RUFINAMIDE
     Indication: Lennox-Gastaut syndrome
     Route: 048
  2. BANZEL [Suspect]
     Active Substance: RUFINAMIDE
     Route: 048
     Dates: start: 20231030

REACTIONS (1)
  - Seizure [Unknown]

NARRATIVE: CASE EVENT DATE: 20231001
